FAERS Safety Report 16001818 (Version 1)
Quarter: 2019Q1

REPORT INFORMATION
  Report Type: Spontaneous
  Country: US (occurrence: US)
  Receive Date: 20190225
  Receipt Date: 20190225
  Transmission Date: 20190418
  Serious: No
  Sender: FDA-Public Use
  Company Number: US-ALLERGAN-1813965US

PATIENT
  Sex: Female

DRUGS (2)
  1. HYDROCODONE BITARTRATE;ACETAMINOPHEN UNK [Suspect]
     Active Substance: ACETAMINOPHEN\HYDROCODONE BITARTRATE
     Indication: BACK PAIN
     Dosage: ONE TO TWO TABLET, Q WEEK
     Route: 065
  2. HYDROCODONE BITARTRATE;ACETAMINOPHEN UNK [Suspect]
     Active Substance: ACETAMINOPHEN\HYDROCODONE BITARTRATE
     Indication: RHEUMATOID ARTHRITIS
     Dosage: 2 TO 3 PILLS, QD
     Route: 065

REACTIONS (5)
  - Abdominal distension [Unknown]
  - Fall [Unknown]
  - Abdominal discomfort [Unknown]
  - Abdominal pain [Unknown]
  - Off label use [Unknown]

NARRATIVE: CASE EVENT DATE: 20180307
